FAERS Safety Report 11362807 (Version 1)
Quarter: 2015Q3

REPORT INFORMATION
  Report Type: Spontaneous
  Country: AT (occurrence: AT)
  Receive Date: 20150810
  Receipt Date: 20150810
  Transmission Date: 20151125
  Serious: Yes (Other)
  Sender: FDA-Public Use
  Company Number: PHHY2015AT067123

PATIENT
  Sex: Female

DRUGS (6)
  1. ACLASTA [Suspect]
     Active Substance: ZOLEDRONIC ACID
     Indication: OSTEOPOROSIS
     Dosage: UNK
     Route: 042
     Dates: start: 20140226
  2. MEXALEN [Concomitant]
     Active Substance: LUBIPROSTONE
     Indication: PRODUCT USED FOR UNKNOWN INDICATION
     Dosage: 500 MG, PRN
     Route: 065
  3. ZOMETA [Suspect]
     Active Substance: ZOLEDRONIC ACID
     Indication: PRODUCT USED FOR UNKNOWN INDICATION
     Dosage: UNK
     Route: 065
     Dates: start: 201308
  4. IMODIUM [Concomitant]
     Active Substance: LOPERAMIDE HYDROCHLORIDE
     Indication: PRODUCT USED FOR UNKNOWN INDICATION
     Route: 065
  5. ACLASTA [Suspect]
     Active Substance: ZOLEDRONIC ACID
     Dosage: UNK
     Route: 065
     Dates: start: 20150527
  6. CA [Concomitant]
     Indication: PRODUCT USED FOR UNKNOWN INDICATION
     Route: 065

REACTIONS (21)
  - Ileus [Unknown]
  - Tongue discolouration [Unknown]
  - Abdominal adhesions [Unknown]
  - Back pain [Unknown]
  - Intestinal strangulation [Unknown]
  - Tongue discolouration [Recovered/Resolved]
  - Erythema [Unknown]
  - Ocular hyperaemia [Unknown]
  - Contusion [Unknown]
  - Gingival pain [Not Recovered/Not Resolved]
  - Pain [Unknown]
  - Vertigo [Unknown]
  - Dysgeusia [Unknown]
  - Abdominal pain upper [Unknown]
  - Jaw disorder [Unknown]
  - Ear infection [Unknown]
  - Pain in jaw [Not Recovered/Not Resolved]
  - Tooth disorder [Unknown]
  - Trismus [Recovered/Resolved]
  - Lymphadenopathy [Recovered/Resolved]
  - Myalgia [Unknown]

NARRATIVE: CASE EVENT DATE: 2014
